FAERS Safety Report 4865385-0 (Version None)
Quarter: 2005Q4

REPORT INFORMATION
  Report Type: 
  Country: None (occurrence: None)
  Receive Date: 20051223
  Receipt Date: 20051220
  Transmission Date: 20060501
  Serious: Yes (Death)
  Sender: FDA-Public Use
  Company Number: DE-AMGEN-UK162268

PATIENT
  Age: 42 Year
  Sex: Female
  Weight: 58 kg

DRUGS (4)
  1. NEULASTA [Suspect]
     Indication: CHEMOTHERAPY
     Route: 065
     Dates: start: 20050101
  2. TAXOTERE [Concomitant]
     Route: 065
  3. DOXORUBICIN HYDROCHLORIDE [Concomitant]
     Route: 065
  4. CYCLOPHOSPHAMIDE [Concomitant]
     Route: 065

REACTIONS (5)
  - COR PULMONALE [None]
  - MULTI-ORGAN FAILURE [None]
  - PULMONARY EMBOLISM [None]
  - SEPSIS [None]
  - WHITE BLOOD CELL COUNT ABNORMAL [None]
